FAERS Safety Report 18756263 (Version 1)
Quarter: 2021Q1

REPORT INFORMATION
  Report Type: Spontaneous
  Country: FR (occurrence: FR)
  Receive Date: 20210119
  Receipt Date: 20210119
  Transmission Date: 20210419
  Serious: Yes (Other)
  Sender: FDA-Public Use
  Company Number: FR-009507513-2101FRA004982

PATIENT
  Age: 58 Year
  Sex: Male
  Weight: 84 kg

DRUGS (10)
  1. MEROPENEM. [Suspect]
     Active Substance: MEROPENEM
     Dosage: 6 GRAM, QD
     Route: 042
     Dates: start: 20200415, end: 20200421
  2. PLAQUENIL [Concomitant]
     Active Substance: HYDROXYCHLOROQUINE SULFATE
     Dosage: 200 MILLIGRAM
     Route: 048
     Dates: start: 20200404, end: 20200409
  3. LINEZOLID. [Suspect]
     Active Substance: LINEZOLID
     Indication: C-REACTIVE PROTEIN INCREASED
     Dosage: 1200 MILLIGRAM, QD
     Route: 042
     Dates: start: 20200411, end: 20200418
  4. AZITHROMYCIN SANDOZ [Suspect]
     Active Substance: AZITHROMYCIN ANHYDROUS
     Indication: LUNG DISORDER
     Dosage: 500 MILLIGRAM, QD
     Route: 048
     Dates: start: 20200403, end: 20200408
  5. CANCIDAS [Suspect]
     Active Substance: CASPOFUNGIN ACETATE
     Dosage: 70 MILLIGRAM, QD
     Route: 042
     Dates: start: 20200419, end: 20200421
  6. VALACYCLOVIR HYDROCHLORIDE. [Suspect]
     Active Substance: VALACYCLOVIR HYDROCHLORIDE
     Dosage: 1000 MILLIGRAM, QD
     Route: 048
     Dates: start: 20200415, end: 20200421
  7. AMPHOTERICIN B. [Concomitant]
     Active Substance: AMPHOTERICIN B
     Dosage: 45 MILLILITER, QD
     Route: 048
     Dates: start: 20200415, end: 20200423
  8. ENOXAPARIN SODIUM. [Concomitant]
     Active Substance: ENOXAPARIN SODIUM
     Dosage: UNK
  9. CEFOTAXIME SODIUM [Suspect]
     Active Substance: CEFOTAXIME SODIUM
     Indication: LUNG DISORDER
     Dosage: 3 GRAM, QD
     Route: 042
     Dates: start: 20200403, end: 20200410
  10. PIPERACILLIN AND TAZOBACTAM [Suspect]
     Active Substance: PIPERACILLIN SODIUM\TAZOBACTAM SODIUM
     Indication: C-REACTIVE PROTEIN INCREASED
     Dosage: 16 GRAM, QD
     Route: 042
     Dates: start: 20200411, end: 20200415

REACTIONS (2)
  - Eosinophilia [Recovered/Resolved]
  - Rash maculo-papular [Recovered/Resolved]

NARRATIVE: CASE EVENT DATE: 20200415
